FAERS Safety Report 9557233 (Version 1)
Quarter: 2013Q3

REPORT INFORMATION
  Report Type: Spontaneous
  Country: US (occurrence: None)
  Receive Date: 20130726
  Receipt Date: 20130726
  Transmission Date: 20140515
  Serious: Yes (Hospitalization)
  Sender: FDA-Public Use
  Company Number: UTC-032895

PATIENT
  Age: 66 Year
  Sex: Female
  Weight: 101.3 kg

DRUGS (1)
  1. REMODULIN [Suspect]
     Indication: PULMONARY ARTERIAL HYPERTENSION
     Dosage: 73.44 UG/KG (0.051 UG/KG, 1 IN 1 MIN), INTRAVENOUS DRIP
     Dates: start: 20110105

REACTIONS (2)
  - Bacteraemia [None]
  - Injection site infection [None]
